FAERS Safety Report 4653799-3 (Version None)
Quarter: 2005Q2

REPORT INFORMATION
  Report Type: 
  Country: None (occurrence: None)
  Receive Date: 20050504
  Receipt Date: 20050421
  Transmission Date: 20051028
  Serious: Yes (Other)
  Sender: FDA-Public Use
  Company Number: 2005066563

PATIENT
  Sex: Female

DRUGS (1)
  1. BEXTRA [Suspect]
     Indication: ILL-DEFINED DISORDER

REACTIONS (13)
  - ABDOMINAL PAIN [None]
  - ABDOMINAL PAIN UPPER [None]
  - BILE DUCT PRESSURE INCREASED [None]
  - DECREASED ACTIVITY [None]
  - DIZZINESS [None]
  - EMPHYSEMA [None]
  - GASTRITIS [None]
  - LYMPHADENOPATHY [None]
  - MALAISE [None]
  - NAUSEA [None]
  - PANCREATITIS [None]
  - TINNITUS [None]
  - VOMITING [None]
